FAERS Safety Report 18073680 (Version 3)
Quarter: 2021Q2

REPORT INFORMATION
  Report Type: Spontaneous
  Country: CA (occurrence: CA)
  Receive Date: 20200727
  Receipt Date: 20210628
  Transmission Date: 20210717
  Serious: Yes (Life-Threatening, Hospitalization, Other)
  Sender: FDA-Public Use
  Company Number: CA-TEVA-2020-CA-1805268

PATIENT
  Age: 43 Year
  Sex: Female
  Weight: 89 kg

DRUGS (6)
  1. PIPERACILLIN AND TAZOBACTAM [Concomitant]
     Active Substance: PIPERACILLIN SODIUM\TAZOBACTAM SODIUM
     Dosage: POWDER FOR SOLUTION INTRAVENOUS
  2. VANCOMYCIN [Concomitant]
     Active Substance: VANCOMYCIN
  3. PANTOPRAZOLE [Concomitant]
     Active Substance: PANTOPRAZOLE
     Dosage: POWDER FOR SOLUTION INTRAVENOUS
  4. CASPOFUNGIN [Concomitant]
     Active Substance: CASPOFUNGIN
  5. FUROSEMIDE. [Suspect]
     Active Substance: FUROSEMIDE
     Indication: OEDEMA
     Dosage: 80 MG, 1 EVERY 8 HOURS, DURATION 22 DAYS
     Route: 042
  6. FUROSEMIDE. [Suspect]
     Active Substance: FUROSEMIDE
     Indication: ASCITES

REACTIONS (11)
  - Eosinophil count increased [Unknown]
  - Haemodialysis [Unknown]
  - Acute kidney injury [Unknown]
  - Pancreatic enzymes increased [Unknown]
  - Thrombocytopenia [Unknown]
  - Hepatic enzyme increased [Unknown]
  - Serum ferritin increased [Unknown]
  - Tubulointerstitial nephritis [Unknown]
  - Drug reaction with eosinophilia and systemic symptoms [Unknown]
  - Pyrexia [Unknown]
  - Hypertriglyceridaemia [Unknown]
